FAERS Safety Report 25667518 (Version 1)
Quarter: 2025Q3

REPORT INFORMATION
  Report Type: Report from Study
  Country: MX (occurrence: MX)
  Receive Date: 20250811
  Receipt Date: 20250811
  Transmission Date: 20251021
  Serious: Yes (Other)
  Sender: JOHNSON AND JOHNSON
  Company Number: MX-JNJFOC-20250802395

PATIENT

DRUGS (4)
  1. SIMPONI [Suspect]
     Active Substance: GOLIMUMAB
     Indication: Psoriatic arthropathy
     Route: 058
  2. SIMPONI [Suspect]
     Active Substance: GOLIMUMAB
     Indication: Spondylitis
  3. REMICADE [Suspect]
     Active Substance: INFLIXIMAB
     Indication: Spondylitis
     Route: 041
  4. REMICADE [Suspect]
     Active Substance: INFLIXIMAB
     Indication: Psoriatic arthropathy

REACTIONS (6)
  - Mycobacterial infection [Unknown]
  - Colonic abscess [Unknown]
  - Urinary tract infection [Unknown]
  - Adverse event [Unknown]
  - Fibromyalgia [Unknown]
  - Abscess soft tissue [Unknown]
